FAERS Safety Report 10576704 (Version 2)
Quarter: 2014Q4

REPORT INFORMATION
  Report Type: Report from Study
  Country: CN (occurrence: CN)
  Receive Date: 20141111
  Receipt Date: 20141111
  Transmission Date: 20150529
  Serious: Yes (Hospitalization)
  Sender: FDA-Public Use
  Company Number: CN-BRISTOL-MYERS SQUIBB COMPANY-20625059

PATIENT
  Age: 29 Year
  Sex: Male
  Weight: 101 kg

DRUGS (2)
  1. METFORMIN HCL TABS [Suspect]
     Active Substance: METFORMIN HYDROCHLORIDE
     Indication: HYPERGLYCAEMIA
     Dosage: 1DF=1 TABLET
     Dates: start: 20140407
  2. BYETTA [Suspect]
     Active Substance: EXENATIDE
     Indication: DIABETES MELLITUS
     Dosage: 07APR14-APR14?2014-UNK?INT ON APR2014
     Route: 058
     Dates: start: 20140407

REACTIONS (15)
  - Vomiting [Recovered/Resolved]
  - Ileus paralytic [Unknown]
  - Alanine aminotransferase increased [Recovered/Resolved]
  - Asthenia [Unknown]
  - Injection site pruritus [Recovered/Resolved]
  - Blood glucose increased [Unknown]
  - Injection site mass [Unknown]
  - Ketoacidosis [Unknown]
  - Decreased appetite [Recovered/Resolved]
  - Sweat gland disorder [Unknown]
  - Abdominal discomfort [Unknown]
  - Injection site erythema [Recovered/Resolved]
  - Diabetic complication [Unknown]
  - Nausea [Recovered/Resolved]
  - Gastric ulcer [Unknown]

NARRATIVE: CASE EVENT DATE: 2014
